FAERS Safety Report 18717222 (Version 1)
Quarter: 2021Q1

REPORT INFORMATION
  Report Type: Spontaneous
  Country: US (occurrence: US)
  Receive Date: 20210108
  Receipt Date: 20210108
  Transmission Date: 20210419
  Serious: Yes (Disabling)
  Sender: FDA-Public Use
  Company Number: None

PATIENT
  Age: 64 Year
  Sex: Female
  Weight: 68.4 kg

DRUGS (11)
  1. UNITHROID [Concomitant]
     Active Substance: LEVOTHYROXINE SODIUM
  2. C [Concomitant]
  3. CALCIUM/MAGNESIUM [Concomitant]
     Active Substance: CALCIUM\MAGNESIUM
  4. BIOIDENTICAL/COMPOUND LOZENGES [Concomitant]
  5. DHEA [Concomitant]
     Active Substance: PRASTERONE
  6. MELOXICAM 15MG TABLET [Suspect]
     Active Substance: MELOXICAM
     Indication: OSTEOARTHRITIS
     Dosage: ?          QUANTITY:1 TABLET(S);?
     Route: 048
     Dates: start: 20201215, end: 20210105
  7. MULTI VITAMINS [Concomitant]
     Active Substance: VITAMINS
  8. NP THYROID [Concomitant]
     Active Substance: LEVOTHYROXINE\LIOTHYRONINE
  9. D [Concomitant]
  10. CPAP MACHINE [Concomitant]
  11. PROGEST [Concomitant]

REACTIONS (4)
  - Stomatitis [None]
  - Cheilitis [None]
  - Dizziness [None]
  - Nausea [None]

NARRATIVE: CASE EVENT DATE: 20210106
